FAERS Safety Report 5833976-6 (Version None)
Quarter: 2008Q3

REPORT INFORMATION
  Report Type: 
  Country: None (occurrence: None)
  Receive Date: 20080801
  Receipt Date: 20080801
  Transmission Date: 20090109
  Serious: Yes (Hospitalization)
  Sender: FDA-Public Use
  Company Number: None

PATIENT
  Age: 65 Year
  Sex: Female
  Weight: 35.8 kg

DRUGS (6)
  1. CETUXIMAB [Suspect]
     Indication: METASTATIC GASTRIC CANCER
     Dosage: 400MG/M2 IV BOLUS
     Route: 040
     Dates: start: 20080716
  2. LIQUID MORPHINE [Concomitant]
  3. METOPROLOL TARTRATE [Concomitant]
  4. PREVACID [Concomitant]
  5. LOVENOX [Concomitant]
  6. FENTANYL [Concomitant]

REACTIONS (2)
  - COMPUTERISED TOMOGRAM THORAX ABNORMAL [None]
  - PNEUMONIA [None]
